FAERS Safety Report 7036138-2 (Version None)
Quarter: 2010Q4

REPORT INFORMATION
  Report Type: 
  Country: None (occurrence: None)
  Receive Date: 20101008
  Receipt Date: 20100216
  Transmission Date: 20110411
  Serious: Yes (Other)
  Sender: FDA-Public Use
  Company Number: US-BRISTOL-MYERS SQUIBB COMPANY-14967608

PATIENT
  Age: 69 Year
  Sex: Female

DRUGS (4)
  1. AVAPRO [Suspect]
     Indication: BLOOD PRESSURE
     Dosage: THERAPY STARTED ABOUT 3 YEARS AGO
  2. NIFEDIPINE [Suspect]
  3. SPIRONOLACTONE [Suspect]
  4. PRILOSEC [Suspect]

REACTIONS (11)
  - BLOOD CREATINE PHOSPHOKINASE INCREASED [None]
  - FEELING ABNORMAL [None]
  - HEADACHE [None]
  - HEART RATE DECREASED [None]
  - HYPOTENSION [None]
  - LYMPHOEDEMA [None]
  - NOCTURIA [None]
  - RENAL IMPAIRMENT [None]
  - TINNITUS [None]
  - VASODILATATION [None]
  - VITAMIN B12 DECREASED [None]
